FAERS Safety Report 4437570-3 (Version None)
Quarter: 2004Q3

REPORT INFORMATION
  Report Type: 
  Country: None (occurrence: None)
  Receive Date: 20040827
  Receipt Date: 20040816
  Transmission Date: 20050211
  Serious: Yes (Other)
  Sender: FDA-Public Use
  Company Number: 2004056458

PATIENT
  Age: 73 Year
  Sex: Female
  Weight: 54.8852 kg

DRUGS (4)
  1. NORVASC [Suspect]
     Indication: HYPERTENSION
     Dosage: 10 MG (10 MG, 1 IN 1 D), ORAL
     Route: 048
  2. LEVOTHYROXINE SODIUM [Concomitant]
  3. FOLIC ACID [Concomitant]
  4. METOPROLOL (METOPROLOL) [Concomitant]

REACTIONS (6)
  - ALOPECIA [None]
  - CEREBROVASCULAR ACCIDENT [None]
  - DIALYSIS [None]
  - LOSS OF CONSCIOUSNESS [None]
  - PRURITUS [None]
  - RENAL FAILURE [None]
